FAERS Safety Report 19911244 (Version 1)
Quarter: 2021Q4

REPORT INFORMATION
  Report Type: Spontaneous
  Country: ES (occurrence: ES)
  Receive Date: 20211004
  Receipt Date: 20211004
  Transmission Date: 20220303
  Serious: Yes (Other)
  Sender: FDA-Public Use
  Company Number: ES-AEMPS-442263

PATIENT
  Age: 48 Year
  Sex: Female

DRUGS (11)
  1. ARIPIPRAZOLE [Suspect]
     Active Substance: ARIPIPRAZOLE
     Indication: Schizophrenia
     Dosage: 5 MILLIGRAM, ONCE A DAY
     Route: 048
     Dates: start: 201809, end: 20190114
  2. CLOZAPINE [Suspect]
     Active Substance: CLOZAPINE
     Indication: Schizophrenia
     Dosage: 175 MILLIGRAM, ONCE A DAY
     Route: 048
     Dates: start: 20140101, end: 20181218
  3. CLOZAPINE [Suspect]
     Active Substance: CLOZAPINE
     Dosage: 175 MILLIGRAM, ONCE A DAY
     Route: 048
     Dates: start: 201808, end: 20181218
  4. LEVOTHYROXINE [Concomitant]
     Active Substance: LEVOTHYROXINE
     Indication: Product used for unknown indication
     Dosage: 150 MICROGRAM, ONCE A DAY
     Route: 048
  5. PHENOBARBITAL [Concomitant]
     Active Substance: PHENOBARBITAL
     Indication: Epilepsy
     Dosage: 400 MILLIGRAM, ONCE A DAY
     Route: 048
  6. AMISULPRIDE [Concomitant]
     Active Substance: AMISULPRIDE
     Indication: Schizophrenia
     Dosage: 1000 MILLIGRAM, ONCE A DAY
     Route: 048
  7. TOPIRAMATE [Concomitant]
     Active Substance: TOPIRAMATE
     Indication: Epilepsy
     Dosage: 20 MILLIGRAM, ONCE A DAY
     Route: 048
  8. GABAPENTIN [Concomitant]
     Active Substance: GABAPENTIN
     Indication: Epilepsy
     Dosage: 1200 MILLIGRAM, ONCE A DAY
     Route: 048
  9. OMEPRAZOLE [Concomitant]
     Active Substance: OMEPRAZOLE
     Indication: Product used for unknown indication
     Dosage: 20 MILLIGRAM, ONCE A DAY
     Route: 048
  10. SERTRALINE [Concomitant]
     Active Substance: SERTRALINE HYDROCHLORIDE
     Indication: Product used for unknown indication
     Dosage: 200 MILLIGRAM, ONCE A DAY
     Route: 048
  11. CLOZAPINE [Concomitant]
     Active Substance: CLOZAPINE
     Indication: Schizophrenia
     Dosage: UNK
     Route: 048
     Dates: start: 2004

REACTIONS (3)
  - Thrombocytopenia [Recovered/Resolved]
  - Neutropenia [Recovered/Resolved]
  - Bicytopenia [Recovered/Resolved]

NARRATIVE: CASE EVENT DATE: 20181218
